FAERS Safety Report 6046227-7 (Version None)
Quarter: 2009Q1

REPORT INFORMATION
  Report Type: 
  Country: None (occurrence: None)
  Receive Date: 20090122
  Receipt Date: 20090113
  Transmission Date: 20090719
  Serious: Yes (Hospitalization)
  Sender: FDA-Public Use
  Company Number: DE-BRISTOL-MYERS SQUIBB COMPANY-14470892

PATIENT
  Age: 69 Year
  Sex: Male

DRUGS (15)
  1. ABATACEPT [Suspect]
     Indication: RHEUMATOID ARTHRITIS
     Dates: start: 20080401, end: 20080424
  2. LEFLUNOMIDE [Suspect]
     Indication: RHEUMATOID ARTHRITIS
     Dosage: 10MG ONCE A DAY FROM AUG-2007
  3. PENICILLAMINE [Suspect]
     Indication: RHEUMATOID ARTHRITIS
     Dates: start: 19810101, end: 20070701
  4. AZATHIOPRINE [Suspect]
     Indication: RHEUMATOID ARTHRITIS
     Dates: start: 19890701, end: 19900501
  5. DECORTIN-H [Concomitant]
  6. FOSAVANCE [Concomitant]
  7. MARCUMAR [Concomitant]
  8. METFORMIN [Concomitant]
     Dosage: 1 DOSAGEFORM = 850 (UNITS NOT MENTIONED) 2X1
  9. MUSARIL [Concomitant]
     Dosage: 2 X 1
  10. MYDOCALM [Concomitant]
     Dosage: 2X1
  11. AMLODIPINE BESYLATE [Concomitant]
     Dosage: 5 MG 1 X1
     Route: 048
  12. RAMIPRIL [Concomitant]
     Dosage: 10 MG 2X1
  13. RANTUDIL [Concomitant]
     Dosage: RANTUDIL FORTE 2X1
  14. IBUPROFEN TABLETS [Concomitant]
     Dosage: IBUHEXAL 3X1
  15. CLINDAMYCIN HCL [Concomitant]
     Dosage: CLINDAMYCIN 3X1

REACTIONS (2)
  - BASAL CELL CARCINOMA [None]
  - OSTEONECROSIS [None]
